FAERS Safety Report 16466713 (Version 1)
Quarter: 2019Q2

REPORT INFORMATION
  Report Type: Spontaneous
  Country: GR (occurrence: GR)
  Receive Date: 20190623
  Receipt Date: 20190623
  Transmission Date: 20190711
  Serious: Yes (Other)
  Sender: FDA-Public Use
  Company Number: GR-JNJFOC-20190615304

PATIENT
  Age: 34 Year
  Sex: Male

DRUGS (1)
  1. GOLIMUMAB SOLUTION FOR INJECTION [Suspect]
     Active Substance: GOLIMUMAB
     Indication: PSORIATIC ARTHROPATHY
     Route: 058
     Dates: start: 2012, end: 201903

REACTIONS (4)
  - Spermatozoa progressive motility decreased [Recovered/Resolved]
  - Spermatozoa abnormal [Recovered/Resolved]
  - Psoriatic arthropathy [Recovered/Resolved]
  - Sperm concentration decreased [Recovered/Resolved]

NARRATIVE: CASE EVENT DATE: 201903
